FAERS Safety Report 7611303-1 (Version None)
Quarter: 2011Q3

REPORT INFORMATION
  Report Type: 
  Country: None (occurrence: None)
  Receive Date: 20110715
  Receipt Date: 20110707
  Transmission Date: 20111222
  Serious: Yes (Hospitalization)
  Sender: FDA-Public Use
  Company Number: US-B.I. PHARMACEUTICALS,INC./RIDGEFIELD-2011-BP-14660BP

PATIENT
  Sex: Female
  Weight: 98 kg

DRUGS (6)
  1. ALBUTEROL SULFATE AUTOHALER [Concomitant]
     Route: 055
  2. METFORMIN HCL [Concomitant]
     Dosage: 1700 MG
     Route: 048
  3. LISINOPRIL [Concomitant]
     Dosage: 125 MG
     Route: 048
     Dates: start: 20110202
  4. IBUPROFEN [Concomitant]
     Dosage: 400 MG
     Route: 048
  5. HYDROCHLOROTHIAZIDE [Concomitant]
     Dosage: 10 MG
     Route: 048
  6. BI 1356 [Suspect]
     Indication: TYPE 2 DIABETES MELLITUS
     Dosage: 5 MG
     Route: 048

REACTIONS (4)
  - CHOLECYSTECTOMY [None]
  - SEPTIC SHOCK [None]
  - INFECTION [None]
  - ACUTE RESPIRATORY FAILURE [None]
